FAERS Safety Report 5982692-9 (Version None)
Quarter: 2008Q4

REPORT INFORMATION
  Report Type: 
  Country: None (occurrence: None)
  Receive Date: 20081208
  Receipt Date: 20080114
  Transmission Date: 20090506
  Serious: Yes (Hospitalization)
  Sender: FDA-Public Use
  Company Number: US-AMGEN-STX260704

PATIENT
  Sex: Female

DRUGS (3)
  1. ENBREL [Suspect]
     Indication: RHEUMATOID ARTHRITIS
     Route: 058
     Dates: start: 19990713
  2. PLAQUENIL [Concomitant]
     Route: 065
     Dates: start: 20070507
  3. METHOTREXATE [Concomitant]
     Route: 065
     Dates: start: 20070507

REACTIONS (6)
  - ABDOMINAL PAIN [None]
  - ABSCESS [None]
  - DIVERTICULITIS [None]
  - INJECTION SITE HAEMORRHAGE [None]
  - INJECTION SITE PAIN [None]
  - RHEUMATOID ARTHRITIS [None]
